FAERS Safety Report 9359787 (Version 4)
Quarter: 2014Q1

REPORT INFORMATION
  Report Type: Spontaneous
  Country: AU (occurrence: AU)
  Receive Date: 20130621
  Receipt Date: 20140203
  Transmission Date: 20141002
  Serious: Yes (Life-Threatening, Other)
  Sender: FDA-Public Use
  Company Number: AU-009507513-1305AUS003391

PATIENT
  Age: 56 Year
  Sex: Male
  Weight: 80 kg

DRUGS (15)
  1. BRIDION [Suspect]
     Indication: NEUROMUSCULAR BLOCKADE REVERSAL
     Dosage: 200 MG, ONCE
  2. DEXAMETHASONE [Concomitant]
     Dosage: UNK
  3. PROPOFOL [Concomitant]
     Dosage: 200 MG, UNK
  4. FENTANYL [Concomitant]
     Dosage: 300 MICROGRAMS, UNK
  5. ROCURONIUM BROMIDE [Concomitant]
     Dosage: 50 MG, UNK
  6. ROCURONIUM BROMIDE [Concomitant]
     Dosage: 20 MG, UNK
  7. DESFLURANE [Concomitant]
     Dosage: IN OXYGEN-ENRICHED AIR, UNK
  8. CEFAZOLIN [Concomitant]
     Dosage: UNK
  9. GRANISETRON [Concomitant]
     Dosage: UNK
  10. DROPERIDOL [Concomitant]
     Dosage: UNK
  11. HEPARIN [Concomitant]
     Dosage: UNK
  12. ROPIVACAINE [Concomitant]
     Dosage: BOLUS OF 10 ML, UNK
     Route: 008
  13. FENTANYL [Concomitant]
     Dosage: 2 UG/ML, RATE OF 10 ML/HOUR, UNK
  14. ALBUMIN HUMAN [Concomitant]
     Dosage: 1 LITERK, UNK
  15. ELECTROLYTES (UNSPECIFIED) [Concomitant]
     Dosage: 2 LITERS, UNK

REACTIONS (1)
  - Anaphylactic reaction [Recovered/Resolved]
